FAERS Safety Report 16548837 (Version 1)
Quarter: 2019Q3

REPORT INFORMATION
  Report Type: Spontaneous
  Country: US (occurrence: US)
  Receive Date: 20190709
  Receipt Date: 20190709
  Transmission Date: 20191004
  Serious: No
  Sender: FDA-Public Use
  Company Number: US-009507513-1907USA001884

PATIENT
  Age: 31 Year
  Sex: Female

DRUGS (13)
  1. LAMOTRIGINE. [Concomitant]
     Active Substance: LAMOTRIGINE
  2. LEUPROLIDE [Concomitant]
     Active Substance: LEUPROLIDE
  3. GANIRELIX ACETATE INJECTION [Suspect]
     Active Substance: GANIRELIX ACETATE
     Indication: INFERTILITY
     Dosage: UNK, INJ SC
     Route: 058
     Dates: start: 20190517
  4. ENOXAPARIN SODIUM. [Concomitant]
     Active Substance: ENOXAPARIN SODIUM
  5. LEVETIRACETAM. [Concomitant]
     Active Substance: LEVETIRACETAM
  6. FOLIC ACID. [Concomitant]
     Active Substance: FOLIC ACID
  7. NORTREL (LEVONORGESTREL) [Concomitant]
     Active Substance: LEVONORGESTREL
  8. OVIDREL [Concomitant]
     Active Substance: CHORIOGONADOTROPIN ALFA
  9. ESTRADIOL. [Concomitant]
     Active Substance: ESTRADIOL
  10. MENOPUR [Concomitant]
     Active Substance: FOLLITROPIN\LUTEINIZING HORMONE
  11. PROGESTERONE. [Concomitant]
     Active Substance: PROGESTERONE
  12. ESTRADIOL. [Concomitant]
     Active Substance: ESTRADIOL
  13. FOLLISTIM AQ [Suspect]
     Active Substance: FOLLITROPIN
     Indication: INFERTILITY
     Dosage: 75 INTERNATIONAL UNIT, UNKNOWN. INJ SC. STRENGTH: 900IU/1.08ML
     Route: 058
     Dates: start: 20190517

REACTIONS (2)
  - Dyspnoea [Unknown]
  - Abdominal distension [Unknown]

NARRATIVE: CASE EVENT DATE: 20190617
